FAERS Safety Report 4681427-X (Version None)
Quarter: 2005Q2

REPORT INFORMATION
  Report Type: 
  Country: None (occurrence: None)
  Receive Date: 20050601
  Receipt Date: 20050512
  Transmission Date: 20051028
  Serious: Yes (Hospitalization, Other)
  Sender: FDA-Public Use
  Company Number: US_0410106494

PATIENT
  Age: 47 Year
  Sex: Female
  Weight: 64 kg

DRUGS (13)
  1. ZYPREXA [Suspect]
     Dates: start: 20040201, end: 20040501
  2. OLANZIPINE/FLUOXETINE CAPSULE [Concomitant]
  3. QUETIAPINE [Concomitant]
  4. ZOLOFT [Concomitant]
  5. SPIRONOLACTONE [Concomitant]
  6. ESOMEPRAZOLE [Concomitant]
  7. CATAPRES [Concomitant]
  8. HYDROXZINE [Concomitant]
  9. PROMETHAZINE [Concomitant]
  10. CLARINEX [Concomitant]
  11. HYDROMORPHONE HCL [Concomitant]
  12. NIFEREX (POLYSACCHARIDE-IRON COMPLEX) [Concomitant]
  13. B12 (CYNANOCOBALAMIN-TANNIN COMPLEX) [Concomitant]

REACTIONS (10)
  - ALANINE AMINOTRANSFERASE INCREASED [None]
  - ANAEMIA [None]
  - ASPARTATE AMINOTRANSFERASE INCREASED [None]
  - BLOOD GLUCOSE INCREASED [None]
  - HAEMOGLOBIN DECREASED [None]
  - HEPATIC ENZYME INCREASED [None]
  - PANCREATITIS ACUTE [None]
  - STAPHYLOCOCCAL BACTERAEMIA [None]
  - SUBCLAVIAN VEIN THROMBOSIS [None]
  - UNEVALUABLE EVENT [None]
